FAERS Safety Report 26068970 (Version 2)
Quarter: 2025Q4

REPORT INFORMATION
  Report Type: Spontaneous
  Country: CA (occurrence: CA)
  Receive Date: 20251120
  Receipt Date: 20251204
  Transmission Date: 20260118
  Serious: Yes (Other)
  Sender: ROCHE
  Company Number: CA-002147023-NVSC2025CA176137

PATIENT
  Age: 48 Year
  Sex: Female
  Weight: 65 kg

DRUGS (3)
  1. OMALIZUMAB [Suspect]
     Active Substance: OMALIZUMAB
     Indication: Anaphylactic reaction
     Dosage: 300 MG, QMO (300 MG S/C Q 4 WEEKS. IT WAS THE FIRST INJECTION)
     Route: 058
     Dates: start: 20251006
  2. OMALIZUMAB [Suspect]
     Active Substance: OMALIZUMAB
     Indication: Autonomic nervous system imbalance
     Dosage: 300 MG, QMO (300 MG S/C Q 4 WEEKS. IT WAS THE FIRST INJECTION)
     Route: 058
  3. OMALIZUMAB [Suspect]
     Active Substance: OMALIZUMAB
     Dosage: 300 MG, QMO (300 MG S/C Q 4 WEEKS. IT WAS THE FIRST INJECTION)
     Route: 058

REACTIONS (7)
  - Depressed level of consciousness [Recovered/Resolved]
  - Abdominal pain [Recovered/Resolved]
  - Cough [Recovered/Resolved]
  - Presyncope [Recovered/Resolved]
  - Nasal congestion [Recovered/Resolved]
  - Off label use [Unknown]
  - Pruritus [Recovered/Resolved]

NARRATIVE: CASE EVENT DATE: 20251006
